FAERS Safety Report 15930527 (Version 1)
Quarter: 2019Q1

REPORT INFORMATION
  Report Type: Spontaneous
  Country: US (occurrence: US)
  Receive Date: 20190206
  Receipt Date: 20190206
  Transmission Date: 20190417
  Serious: Yes (Other)
  Sender: FDA-Public Use
  Company Number: None

PATIENT
  Age: 46 Year
  Sex: Male
  Weight: 121 kg

DRUGS (1)
  1. XARELTO [Suspect]
     Active Substance: RIVAROXABAN
     Indication: PULMONARY EMBOLISM
     Route: 048
     Dates: start: 20190129, end: 20190204

REACTIONS (5)
  - Rash pruritic [None]
  - Pain [None]
  - Blister [None]
  - Pruritus [None]
  - Oedema [None]

NARRATIVE: CASE EVENT DATE: 20190202
